FAERS Safety Report 9720629 (Version 1)
Quarter: 2013Q4

REPORT INFORMATION
  Report Type: Report from Study
  Country: US (occurrence: US)
  Receive Date: 20131129
  Receipt Date: 20131129
  Transmission Date: 20140711
  Serious: Yes (Other)
  Sender: FDA-Public Use
  Company Number: PHEH2013US024693

PATIENT
  Age: 34 Year
  Sex: Female
  Weight: 59.86 kg

DRUGS (1)
  1. GILENYA [Suspect]
     Indication: MULTIPLE SCLEROSIS
     Dosage: 0.5 MG, QD
     Route: 048
     Dates: start: 20131122

REACTIONS (3)
  - Blood pressure decreased [Unknown]
  - Sinus bradycardia [Unknown]
  - Fatigue [Recovered/Resolved]
